FAERS Safety Report 7306104-8 (Version None)
Quarter: 2011Q1

REPORT INFORMATION
  Report Type: 
  Country: None (occurrence: None)
  Receive Date: 20110222
  Receipt Date: 20110210
  Transmission Date: 20110831
  Serious: Yes (Other)
  Sender: FDA-Public Use
  Company Number: GB-MERCK-1101GBR00025

PATIENT
  Sex: Male

DRUGS (5)
  1. PROSCAR [Suspect]
     Route: 048
     Dates: start: 20080101
  2. ANASTROZOLE [Concomitant]
     Route: 065
  3. MESTEROLONE [Concomitant]
     Route: 065
  4. STANOLONE [Concomitant]
     Indication: SEXUAL DYSFUNCTION
     Route: 065
  5. PROSCAR [Suspect]
     Route: 048
     Dates: end: 20100301

REACTIONS (20)
  - DISSOCIATION [None]
  - SELF-MEDICATION [None]
  - LIBIDO DECREASED [None]
  - GYNAECOMASTIA [None]
  - SUICIDAL IDEATION [None]
  - HYPOTRICHOSIS [None]
  - MICTURITION DISORDER [None]
  - URGE INCONTINENCE [None]
  - SUICIDE ATTEMPT [None]
  - ALOPECIA [None]
  - TESTICULAR PAIN [None]
  - ORGANIC ERECTILE DYSFUNCTION [None]
  - MYALGIA [None]
  - DISTURBANCE IN SEXUAL AROUSAL [None]
  - DRUG DEPENDENCE [None]
  - ERECTILE DYSFUNCTION [None]
  - CHEST PAIN [None]
  - MUSCULAR WEAKNESS [None]
  - SECONDARY HYPOGONADISM [None]
  - PENILE PAIN [None]
